FAERS Safety Report 10925673 (Version 1)
Quarter: 2015Q1

REPORT INFORMATION
  Report Type: Spontaneous
  Country: US (occurrence: None)
  Receive Date: 20150316
  Receipt Date: 20150316
  Transmission Date: 20150721
  Serious: No
  Sender: FDA-Public Use
  Company Number: None

PATIENT
  Age: 51 Year
  Sex: Female
  Weight: 147.42 kg

DRUGS (7)
  1. TRAMADOL [Concomitant]
     Active Substance: TRAMADOL
  2. LIDOCAINE PATCHES [Concomitant]
  3. TYLENOL [Concomitant]
     Active Substance: ACETAMINOPHEN
  4. HYDROCODONE/APAP [Suspect]
     Active Substance: ACETAMINOPHEN\HYDROCODONE
     Indication: INTERVERTEBRAL DISC PROTRUSION
     Route: 048
     Dates: start: 20150303, end: 20150312
  5. HYDROCODONE/APAP [Suspect]
     Active Substance: ACETAMINOPHEN\HYDROCODONE
     Indication: OSTEOARTHRITIS
     Route: 048
     Dates: start: 20150303, end: 20150312
  6. RANITIDINE [Concomitant]
     Active Substance: RANITIDINE\RANITIDINE HYDROCHLORIDE
  7. NATURE MADE MULTI VITAMIN [Concomitant]

REACTIONS (12)
  - Nausea [None]
  - Product substitution issue [None]
  - Product quality issue [None]
  - Abdominal pain upper [None]
  - Drug effect decreased [None]
  - Nervousness [None]
  - Malaise [None]
  - Extrasystoles [None]
  - Irritability [None]
  - Psychomotor hyperactivity [None]
  - Headache [None]
  - Confusional state [None]

NARRATIVE: CASE EVENT DATE: 20150306
